FAERS Safety Report 14944564 (Version 13)
Quarter: 2021Q4

REPORT INFORMATION
  Report Type: Report from Study
  Country: NL (occurrence: NL)
  Receive Date: 20180529
  Receipt Date: 20211203
  Transmission Date: 20220303
  Serious: Yes (Hospitalization)
  Sender: FDA-Public Use
  Company Number: NL-ABBVIE-18K-114-2231839-00

PATIENT
  Sex: Female
  Weight: 80 kg

DRUGS (14)
  1. CARBIDOPA\LEVODOPA [Suspect]
     Active Substance: CARBIDOPA\LEVODOPA
     Indication: Parkinson^s disease
     Dosage: MD 10.5ML, CD 3.0ML/H, ED 1.5ML
     Route: 050
     Dates: start: 20180108, end: 201801
  2. CARBIDOPA\LEVODOPA [Suspect]
     Active Substance: CARBIDOPA\LEVODOPA
     Dosage: MORNING DOSE 10.5, CONTINUOUS DOSE 2.5, EXTRA DOSE 1.5
     Route: 050
     Dates: start: 201801
  3. CARBIDOPA\LEVODOPA [Suspect]
     Active Substance: CARBIDOPA\LEVODOPA
     Dosage: MD10.5 ML, CD 2.8 ML/HR, ED 1.5 ML
     Route: 050
  4. CARBIDOPA\LEVODOPA [Suspect]
     Active Substance: CARBIDOPA\LEVODOPA
     Dosage: CD 3.0
     Route: 050
  5. CARBIDOPA\LEVODOPA [Suspect]
     Active Substance: CARBIDOPA\LEVODOPA
     Dosage: MD 10.5ML, CD 3.0ML/H, ED 1.5ML
     Route: 050
  6. CARBIDOPA\LEVODOPA [Suspect]
     Active Substance: CARBIDOPA\LEVODOPA
     Dosage: MD 10.5ML, CD 2.9ML/H, ED 1.5ML
     Route: 050
  7. CARBIDOPA\LEVODOPA [Suspect]
     Active Substance: CARBIDOPA\LEVODOPA
     Dosage: MD 10.5ML, CD 3.0ML/H, ED 1.5M
     Route: 050
  8. CARBIDOPA\LEVODOPA [Suspect]
     Active Substance: CARBIDOPA\LEVODOPA
     Dosage: MD 10.5ML, CD 3.2ML/H, ED 1.5ML
     Route: 050
  9. POLYETHYLENE GLYCOLS [Suspect]
     Active Substance: POLYETHYLENE GLYCOLS
     Indication: Abnormal faeces
     Dosage: 3 TO 4 SCOOPS DAILY
     Route: 065
  10. MOVICOLON [Concomitant]
     Active Substance: POLYETHYLENE GLYCOL 3350\POTASSIUM CHLORIDE\SODIUM BICARBONATE\SODIUM CHLORIDE
     Indication: Abnormal faeces
  11. TRIMETHOPRIM [Concomitant]
     Active Substance: TRIMETHOPRIM
     Indication: Product used for unknown indication
  12. NITROFURANTOIN [Concomitant]
     Active Substance: NITROFURANTOIN
     Indication: Product used for unknown indication
  13. FOLIC ACID [Concomitant]
     Active Substance: FOLIC ACID
     Indication: Product used for unknown indication
  14. CHOLECALCIFEROL [Concomitant]
     Active Substance: CHOLECALCIFEROL
     Indication: Product used for unknown indication

REACTIONS (48)
  - Musculoskeletal disorder [Not Recovered/Not Resolved]
  - Respiratory tract infection [Recovering/Resolving]
  - Syncope [Not Recovered/Not Resolved]
  - Loss of consciousness [Unknown]
  - Hospitalisation [Recovered/Resolved]
  - Unresponsive to stimuli [Not Recovered/Not Resolved]
  - Pain in extremity [Recovering/Resolving]
  - Arthralgia [Recovering/Resolving]
  - Mobility decreased [Not Recovered/Not Resolved]
  - Cognitive disorder [Not Recovered/Not Resolved]
  - Urinary tract infection [Not Recovered/Not Resolved]
  - Pain [Recovering/Resolving]
  - Weight decreased [Not Recovered/Not Resolved]
  - Blood pressure decreased [Unknown]
  - Abnormal dreams [Not Recovered/Not Resolved]
  - On and off phenomenon [Not Recovered/Not Resolved]
  - Dyskinesia [Not Recovered/Not Resolved]
  - Hallucination [Recovered/Resolved]
  - Freezing phenomenon [Recovering/Resolving]
  - Therapeutic product effect delayed [Not Recovered/Not Resolved]
  - Bradykinesia [Not Recovered/Not Resolved]
  - Hypotension [Not Recovered/Not Resolved]
  - Cough [Recovering/Resolving]
  - Memory impairment [Not Recovered/Not Resolved]
  - Constipation [Recovered/Resolved]
  - Gait disturbance [Unknown]
  - Parkinsonian gait [Unknown]
  - Hallucination [Recovering/Resolving]
  - Muscle rigidity [Not Recovered/Not Resolved]
  - Myalgia [Not Recovered/Not Resolved]
  - Parkinson^s disease [Not Recovered/Not Resolved]
  - Impaired quality of life [Unknown]
  - Extra dose administered [Recovered/Resolved]
  - Condition aggravated [Not Recovered/Not Resolved]
  - Infrequent bowel movements [Recovered/Resolved]
  - Wheelchair user [Unknown]
  - Posture abnormal [Not Recovered/Not Resolved]
  - Incorrect dose administered [Recovering/Resolving]
  - Somnolence [Recovering/Resolving]
  - Hypophagia [Not Recovered/Not Resolved]
  - Dyschezia [Not Recovered/Not Resolved]
  - Dementia [Not Recovered/Not Resolved]
  - Cognitive disorder [Not Recovered/Not Resolved]
  - General physical health deterioration [Unknown]
  - Disturbance in attention [Unknown]
  - Abnormal faeces [Unknown]
  - Device extension damage [Unknown]
  - Embedded device [Recovered/Resolved]

NARRATIVE: CASE EVENT DATE: 20180101
